FAERS Safety Report 6152262-0 (Version None)
Quarter: 2009Q2

REPORT INFORMATION
  Report Type: 
  Country: None (occurrence: None)
  Receive Date: 20090410
  Receipt Date: 20090403
  Transmission Date: 20091009
  Serious: Yes (Hospitalization, Other)
  Sender: FDA-Public Use
  Company Number: US-AMGEN-QUU266002

PATIENT
  Sex: Female
  Weight: 101.7 kg

DRUGS (2)
  1. ENBREL [Suspect]
     Indication: PSORIATIC ARTHROPATHY
     Route: 058
     Dates: start: 20060601
  2. ENBREL [Suspect]
     Indication: PSORIASIS

REACTIONS (21)
  - ALOPECIA [None]
  - AMNESIA [None]
  - ASTHMA [None]
  - COUGH [None]
  - DIARRHOEA [None]
  - DRY SKIN [None]
  - DYSKINESIA [None]
  - HYPERSOMNIA [None]
  - HYPOCALCAEMIA [None]
  - IRRITABILITY [None]
  - MALAISE [None]
  - MEMORY IMPAIRMENT [None]
  - NAIL GROWTH ABNORMAL [None]
  - PARATHYROID DISORDER [None]
  - RESPIRATORY TRACT CONGESTION [None]
  - RESTLESS LEGS SYNDROME [None]
  - SLEEP APNOEA SYNDROME [None]
  - THYROID CANCER [None]
  - THYROID DISORDER [None]
  - THYROID NEOPLASM [None]
  - WEIGHT INCREASED [None]
